FAERS Safety Report 4945358-X (Version None)
Quarter: 2006Q1

REPORT INFORMATION
  Report Type: 
  Country: None (occurrence: None)
  Receive Date: 20060315
  Receipt Date: 20060315
  Transmission Date: 20060701
  Serious: Yes (Other)
  Sender: FDA-Public Use
  Company Number: None

PATIENT
  Age: 74 Year
  Sex: Male

DRUGS (1)
  1. SINEMET 50/200 CARBIDOPA/LEVO ER TABS APO132-50/200 TORPHARM (APOTEX) [Suspect]
     Indication: PARKINSON'S DISEASE
     Dosage: TAKE 1/2 TABET AT 8:30 AM AND 12 NOON TAKE 1 AND 1/2 TABLETS AT 9 PM
     Dates: start: 20060201

REACTIONS (4)
  - ILL-DEFINED DISORDER [None]
  - LISTLESS [None]
  - PHARMACEUTICAL PRODUCT COMPLAINT [None]
  - SEDATION [None]
